FAERS Safety Report 5558131-9 (Version None)
Quarter: 2007Q4

REPORT INFORMATION
  Report Type: 
  Country: None (occurrence: None)
  Receive Date: 20071214
  Receipt Date: 20071203
  Transmission Date: 20080405
  Serious: Yes (Other)
  Sender: FDA-Public Use
  Company Number: US-PFIZER INC-2007102174

PATIENT
  Sex: Female

DRUGS (12)
  1. LYRICA [Suspect]
     Indication: FIBROMYALGIA
  2. LYRICA [Suspect]
     Indication: NEUROPATHY PERIPHERAL
  3. OXYCONTIN [Concomitant]
  4. ROZEREM [Concomitant]
  5. LEVOTHYROXINE SODIUM [Concomitant]
  6. GUAIFENESIN [Concomitant]
  7. ADVAIR DISKUS 100/50 [Concomitant]
  8. FLONASE [Concomitant]
  9. MONTELUKAST SODIUM [Concomitant]
  10. VYTORIN [Concomitant]
  11. PERCOCET [Concomitant]
  12. DRUG, UNSPECIFIED [Concomitant]

REACTIONS (4)
  - CONTUSION [None]
  - FATIGUE [None]
  - NARCOLEPSY [None]
  - ROAD TRAFFIC ACCIDENT [None]
